FAERS Safety Report 17229658 (Version 1)
Quarter: 2020Q1

REPORT INFORMATION
  Report Type: Spontaneous
  Country: CN (occurrence: CN)
  Receive Date: 20200103
  Receipt Date: 20200103
  Transmission Date: 20200409
  Serious: Yes (Life-Threatening, Other)
  Sender: FDA-Public Use
  Company Number: CN-PFIZER INC-2020000170

PATIENT
  Age: 61 Year
  Sex: Male
  Weight: 60 kg

DRUGS (2)
  1. MABTHERA [Suspect]
     Active Substance: RITUXIMAB
     Indication: LYMPHOMA
     Dosage: 375 MG/M2, 1X/DAY
     Route: 041
     Dates: start: 20191114, end: 20191114
  2. METHOTREXATE SODIUM. [Suspect]
     Active Substance: METHOTREXATE SODIUM
     Indication: LYMPHOMA
     Dosage: 40 MG/M2, 1X/DAY
     Route: 041
     Dates: start: 20191114, end: 20191114

REACTIONS (3)
  - Bone marrow failure [Unknown]
  - Dermatitis exfoliative [Unknown]
  - Stomatitis [Unknown]

NARRATIVE: CASE EVENT DATE: 20191124
